FAERS Safety Report 12782097 (Version 2)
Quarter: 2016Q4

REPORT INFORMATION
  Report Type: Spontaneous
  Country: US (occurrence: US)
  Receive Date: 20160927
  Receipt Date: 20161003
  Transmission Date: 20170207
  Serious: No
  Sender: FDA-Public Use
  Company Number: ALCN2016US006578

PATIENT
  Age: 75 Year
  Sex: Female
  Weight: 172 kg

DRUGS (2)
  1. PAZEO [Suspect]
     Active Substance: OLOPATADINE HYDROCHLORIDE
     Indication: LACRIMATION INCREASED
     Dosage: 1 GTT, BID
     Route: 047
     Dates: start: 20160919, end: 20160927
  2. PAZEO [Suspect]
     Active Substance: OLOPATADINE HYDROCHLORIDE
     Indication: CYST

REACTIONS (1)
  - Product packaging issue [Unknown]
